FAERS Safety Report 18797667 (Version 2)
Quarter: 2021Q1

REPORT INFORMATION
  Report Type: Report from Study
  Country: None (occurrence: CA)
  Receive Date: 20210128
  Receipt Date: 20210206
  Transmission Date: 20210419
  Serious: Yes (Other)
  Sender: FDA-Public Use
  Company Number: CA-ABBVIE-21K-028-3746506-00

PATIENT
  Age: 74 Year
  Sex: Female

DRUGS (1)
  1. HUMIRA [Suspect]
     Active Substance: ADALIMUMAB
     Indication: COLITIS ULCERATIVE
     Route: 058
     Dates: start: 20201201

REACTIONS (3)
  - Pain [Not Recovered/Not Resolved]
  - Systemic lupus erythematosus [Unknown]
  - Induration [Recovering/Resolving]

NARRATIVE: CASE EVENT DATE: 202012
